FAERS Safety Report 10986257 (Version 2)
Quarter: 2015Q2

REPORT INFORMATION
  Report Type: Spontaneous
  Country: US (occurrence: US)
  Receive Date: 20150404
  Receipt Date: 20150525
  Transmission Date: 20150821
  Serious: No
  Sender: FDA-Public Use
  Company Number: US-JNJFOC-20130900262

PATIENT
  Sex: Female
  Weight: 65.77 kg

DRUGS (11)
  1. EXCEDRIN [Concomitant]
     Active Substance: ACETAMINOPHEN\ASPIRIN\CAFFEINE
  2. BUDESONIDE. [Concomitant]
     Active Substance: BUDESONIDE
  3. IMODIUM MULTI-SYMPTOM RELIEF [Suspect]
     Active Substance: DIMETHICONE\LOPERAMIDE HYDROCHLORIDE
     Route: 048
  4. PREDNISONE. [Concomitant]
     Active Substance: PREDNISONE
  5. TRAZODONE [Concomitant]
     Active Substance: TRAZODONE HYDROCHLORIDE
  6. IMODIUM MULTI-SYMPTOM RELIEF [Suspect]
     Active Substance: DIMETHICONE\LOPERAMIDE HYDROCHLORIDE
     Indication: DIARRHOEA
     Dosage: 2-3 A DAY
     Route: 048
  7. RESTASIS [Concomitant]
     Active Substance: CYCLOSPORINE
  8. MULTIVITAMINS [Concomitant]
     Active Substance: VITAMINS
  9. LEVALBUTEROL [Concomitant]
     Active Substance: LEVALBUTEROL
  10. DIOVAN [Concomitant]
     Active Substance: VALSARTAN
  11. OMEPRAZOLE. [Concomitant]
     Active Substance: OMEPRAZOLE

REACTIONS (1)
  - Intentional product use issue [Unknown]
